FAERS Safety Report 7499530-8 (Version None)
Quarter: 2011Q2

REPORT INFORMATION
  Report Type: 
  Country: None (occurrence: None)
  Receive Date: 20110524
  Receipt Date: 20110516
  Transmission Date: 20111010
  Serious: Yes (Other)
  Sender: FDA-Public Use
  Company Number: US-SANOFI-AVENTIS-2011SA031172

PATIENT
  Age: 65 Year
  Sex: Male

DRUGS (2)
  1. LANTUS [Suspect]
     Dosage: DOSE:22 UNIT(S)
     Route: 058
     Dates: start: 20060101
  2. OPTICLICK [Suspect]
     Dates: start: 20060101

REACTIONS (2)
  - VISUAL IMPAIRMENT [None]
  - RETINAL HAEMORRHAGE [None]
